FAERS Safety Report 4635722-0 (Version None)
Quarter: 2005Q2

REPORT INFORMATION
  Report Type: 
  Country: None (occurrence: None)
  Receive Date: 20050413
  Receipt Date: 20050331
  Transmission Date: 20051028
  Serious: Yes (Hospitalization, Other)
  Sender: FDA-Public Use
  Company Number: HQWYE626001APR05

PATIENT
  Age: 60 Year
  Sex: Female

DRUGS (9)
  1. ZOSYN [Suspect]
     Indication: SKIN INFECTION
     Dosage: 3.375 G 1X PER 6 HR, INTRAVENOUS
     Route: 042
     Dates: start: 20021106, end: 20021109
  2. AMOXICILLIN AND CLAVULANATE POTASSIUM [Suspect]
     Indication: SKIN INFECTION
     Dosage: 800 MG 1X PER 12 HR, ORAL
     Route: 048
     Dates: start: 20021109, end: 20021119
  3. HYDROCHLOROTHIAZIDE [Concomitant]
  4. COUMADIN [Concomitant]
  5. VERAPAMIL [Concomitant]
  6. ATENOLOL [Concomitant]
  7. LASIX [Concomitant]
  8. LISINOPRIL [Concomitant]
  9. ASPIRIN [Concomitant]

REACTIONS (7)
  - BRADYCARDIA [None]
  - CARDIAC FAILURE CONGESTIVE [None]
  - CONCOMITANT DISEASE PROGRESSION [None]
  - DILATATION ATRIAL [None]
  - EXTRASYSTOLES [None]
  - HYPOKALAEMIA [None]
  - ULTRASOUND DOPPLER ABNORMAL [None]
